FAERS Safety Report 10400245 (Version 3)
Quarter: 2014Q4

REPORT INFORMATION
  Report Type: Report from Study
  Country: US (occurrence: US)
  Receive Date: 20140821
  Receipt Date: 20141001
  Transmission Date: 20150528
  Serious: Yes (Hospitalization)
  Sender: FDA-Public Use
  Company Number: US-SA-2014SA111243

PATIENT
  Age: 66 Year
  Sex: Female

DRUGS (15)
  1. LUMIGAN [Concomitant]
     Active Substance: BIMATOPROST
     Dosage: STRENGTH: 0.1 %,  2.5 MLS BOTH EYES AT BED TIME
  2. MULTIVITAMINS [Concomitant]
     Active Substance: VITAMINS
  3. BACLOFEN. [Concomitant]
     Active Substance: BACLOFEN
     Dosage: STRENGTH: 10 MG?DOSE: 2 TABS A.M. AND 2 TABS P.M.
     Route: 065
  4. CALCIUM [Concomitant]
     Active Substance: CALCIUM
  5. TIMOPTIC [Concomitant]
     Active Substance: TIMOLOL MALEATE
     Dosage: DAILY BOTH EYES IN MORNING
  6. ASPIRIN. [Concomitant]
     Active Substance: ASPIRIN
  7. VITAMIN C [Concomitant]
     Active Substance: ASCORBIC ACID
     Dosage: DOSE:500 UNIT(S)
  8. LEXAPRO [Concomitant]
     Active Substance: ESCITALOPRAM OXALATE
  9. METOPROLOL [Concomitant]
     Active Substance: METOPROLOL
     Dosage: STRENGTH: 25 MG
  10. ARICEPT [Concomitant]
     Active Substance: DONEPEZIL HYDROCHLORIDE
  11. ADDERALL XR [Concomitant]
     Active Substance: AMPHETAMINE ASPARTATE\AMPHETAMINE SULFATE\DEXTROAMPHETAMINE SACCHARATE\DEXTROAMPHETAMINE SULFATE
  12. NAPROXEN SODIUM. [Concomitant]
     Active Substance: NAPROXEN SODIUM
  13. NEXIUM [Concomitant]
     Active Substance: ESOMEPRAZOLE MAGNESIUM
  14. AUBAGIO [Suspect]
     Active Substance: TERIFLUNOMIDE
     Indication: MULTIPLE SCLEROSIS
     Route: 048
     Dates: start: 20140612
  15. OMEGA 3 [Concomitant]
     Active Substance: OMEGA-3 FATTY ACIDS
     Dosage: STRENGTH: 1200 MG
     Route: 065

REACTIONS (7)
  - Hyperhidrosis [Recovered/Resolved]
  - Decreased appetite [Recovering/Resolving]
  - Shoulder operation [Unknown]
  - Influenza like illness [Recovered/Resolved]
  - Chills [Recovered/Resolved]
  - Diarrhoea [Recovered/Resolved]
  - Hypoaesthesia [Unknown]

NARRATIVE: CASE EVENT DATE: 201408
